FAERS Safety Report 8536119-3 (Version None)
Quarter: 2012Q3

REPORT INFORMATION
  Report Type: 
  Country: None (occurrence: None)
  Receive Date: 20120725
  Receipt Date: 20120713
  Transmission Date: 20120928
  Serious: Yes (Other)
  Sender: FDA-Public Use
  Company Number: FR-ASTELLAS-2012EU005262

PATIENT
  Age: 48 Year
  Sex: Female

DRUGS (2)
  1. VESICARE [Suspect]
     Dosage: 5 MG, UID/QD
     Route: 048
     Dates: start: 20120201
  2. VESICARE [Suspect]
     Dosage: 5 MG, BID
     Route: 048
     Dates: end: 20120301

REACTIONS (2)
  - INTENTIONAL DRUG MISUSE [None]
  - ANURIA [None]
